FAERS Safety Report 20817984 (Version 1)
Quarter: 2022Q2

REPORT INFORMATION
  Report Type: Spontaneous
  Country: TN (occurrence: TN)
  Receive Date: 20220512
  Receipt Date: 20220512
  Transmission Date: 20220720
  Serious: Yes (Death, Hospitalization)
  Sender: FDA-Public Use
  Company Number: TN-STRIDES ARCOLAB LIMITED-2022SP005295

PATIENT
  Age: 13 Year
  Sex: Female

DRUGS (2)
  1. PREDNISOLONE [Suspect]
     Active Substance: PREDNISOLONE
     Indication: Acute disseminated encephalomyelitis
     Dosage: 1.2 MILLIGRAM/KILOGRAM PER DAY, LATER, TAPERED OFF WITHIN THE NEXT 3 MONTHS
     Route: 048
  2. METHYLPREDNISOLONE [Suspect]
     Active Substance: METHYLPREDNISOLONE
     Indication: Acute disseminated encephalomyelitis
     Dosage: 30 MILLIGRAM/KILOGRAM PER DAY
     Route: 042

REACTIONS (1)
  - Drug ineffective [Fatal]
